FAERS Safety Report 8976130 (Version 1)
Quarter: 2012Q4

REPORT INFORMATION
  Report Type: 
  Country: US (occurrence: US)
  Receive Date: 20121219
  Receipt Date: 20121219
  Transmission Date: 20130627
  Serious: No
  Sender: FDA-Public Use
  Company Number: US-AMGEN-USASP2012067067

PATIENT
  Age: 84 Year
  Sex: Female

DRUGS (7)
  1. PROLIA [Suspect]
     Indication: OSTEOPENIA
     Dosage: UNK
     Dates: start: 20110915
  2. ALTACE [Concomitant]
  3. PLAQUENIL                          /00072602/ [Concomitant]
  4. METOPROLOL [Concomitant]
  5. NIACIN [Concomitant]
  6. BABY ASPIRIN [Concomitant]
     Dosage: 81 UNK, UNK
  7. ONE-A-DAY /00156401/ [Concomitant]

REACTIONS (3)
  - Chest pain [Recovered/Resolved]
  - Blood cholesterol increased [Unknown]
  - Muscle spasms [Unknown]
